FAERS Safety Report 10751492 (Version 1)
Quarter: 2015Q1

REPORT INFORMATION
  Report Type: Spontaneous
  Country: US (occurrence: None)
  Receive Date: 20150129
  Receipt Date: 20150129
  Transmission Date: 20150721
  Serious: Yes (Hospitalization)
  Sender: FDA-Public Use
  Company Number: None

PATIENT
  Age: 51 Year
  Sex: Male

DRUGS (8)
  1. ASPIRIN. [Concomitant]
     Active Substance: ASPIRIN
  2. LOSARTAN [Concomitant]
     Active Substance: LOSARTAN
  3. NEBIVOLOL [Concomitant]
     Active Substance: NEBIVOLOL
  4. RIVAROXABAN [Concomitant]
     Active Substance: RIVAROXABAN
  5. RIVAROXABAN 20MG JANSSEN [Suspect]
     Active Substance: RIVAROXABAN
     Indication: DEEP VEIN THROMBOSIS
     Route: 048
  6. RIVAROXABAN 20MG JANSSEN [Suspect]
     Active Substance: RIVAROXABAN
     Route: 048
  7. ATORVASTATIN [Concomitant]
     Active Substance: ATORVASTATIN
  8. CARBAMAZEPINE. [Concomitant]
     Active Substance: CARBAMAZEPINE

REACTIONS (3)
  - Pulmonary embolism [None]
  - Labelled drug-drug interaction medication error [None]
  - Drug prescribing error [None]

NARRATIVE: CASE EVENT DATE: 20150121
